FAERS Safety Report 6649791-X (Version None)
Quarter: 2010Q1

REPORT INFORMATION
  Report Type: 
  Country: None (occurrence: None)
  Receive Date: 20100322
  Receipt Date: 20100309
  Transmission Date: 20100710
  Serious: Yes (Hospitalization)
  Sender: FDA-Public Use
  Company Number: 232470J10USA

PATIENT
  Age: 73 Year
  Sex: Male
  Weight: 59 kg

DRUGS (10)
  1. REBIF [Suspect]
     Indication: MULTIPLE SCLEROSIS
     Dosage: 44 MCG, 3 IN 1 WEEKS, SUBCUTANEOUS
     Route: 058
     Dates: start: 20080116
  2. SIMVASTATIN [Concomitant]
  3. COREG [Concomitant]
  4. LISINOPRIL [Concomitant]
  5. LANOXIN [Concomitant]
  6. CARDURA [Concomitant]
  7. PROZAC [Concomitant]
  8. BACLOFEN [Concomitant]
  9. DURAGESIC-100 [Concomitant]
  10. NORCO [Concomitant]

REACTIONS (3)
  - DECUBITUS ULCER [None]
  - INJECTION SITE ERYTHEMA [None]
  - URINARY TRACT INFECTION [None]
